FAERS Safety Report 5098788-2 (Version None)
Quarter: 2006Q3

REPORT INFORMATION
  Report Type: 
  Country: None (occurrence: None)
  Receive Date: 20060907
  Receipt Date: 20060814
  Transmission Date: 20061208
  Serious: Yes (Hospitalization)
  Sender: FDA-Public Use
  Company Number: US-AMGEN-US189940

PATIENT
  Sex: Male

DRUGS (6)
  1. ARANESP [Suspect]
     Indication: ANAEMIA OF MALIGNANT DISEASE
     Route: 058
     Dates: start: 20060627, end: 20060701
  2. CORTICOSTEROID NOS [Concomitant]
     Route: 048
     Dates: start: 20060701
  3. UNSPECIFIED THYROID MEDICATION [Concomitant]
  4. ANTICONVULSANT MEDICATION NOS [Concomitant]
     Dates: start: 20060701
  5. DILANTIN [Concomitant]
     Dates: end: 20060701
  6. CORTICOSTEROIDS [Concomitant]
     Route: 061

REACTIONS (6)
  - HYPERSENSITIVITY [None]
  - INJECTION SITE REACTION [None]
  - PYREXIA [None]
  - RASH GENERALISED [None]
  - RASH PRURITIC [None]
  - SKIN EXFOLIATION [None]
